FAERS Safety Report 6566977-3 (Version None)
Quarter: 2010Q1

REPORT INFORMATION
  Report Type: 
  Country: None (occurrence: None)
  Receive Date: 20100128
  Receipt Date: 20100126
  Transmission Date: 20100710
  Serious: Yes (Other)
  Sender: FDA-Public Use
  Company Number: 2009SP024727

PATIENT
  Age: 58 Year
  Sex: Male
  Weight: 48 kg

DRUGS (9)
  1. PEG-INTRON [Suspect]
     Indication: HEPATITIS C
     Dosage: 80 MCG;QW;SC; 60 MCG;QW;SC;
     Route: 058
     Dates: start: 20080910, end: 20080910
  2. PEG-INTRON [Suspect]
     Indication: HEPATITIS C
     Dosage: 80 MCG;QW;SC; 60 MCG;QW;SC;
     Route: 058
     Dates: start: 20080917, end: 20090313
  3. REBETOL [Suspect]
     Dosage: 600 MG;QD; PO; 400 MG;QD;PO; 200 MG;QD;PO
     Route: 048
     Dates: start: 20080910, end: 20080923
  4. REBETOL [Suspect]
     Dosage: 600 MG;QD; PO; 400 MG;QD;PO; 200 MG;QD;PO
     Route: 048
     Dates: start: 20080924, end: 20081009
  5. REBETOL [Suspect]
     Dosage: 600 MG;QD; PO; 400 MG;QD;PO; 200 MG;QD;PO
     Route: 048
     Dates: start: 20081010, end: 20090326
  6. KENTAN (CON.) [Concomitant]
  7. SEFTAC (CON.) [Concomitant]
  8. SORENTMIN (CON.) [Concomitant]
  9. GLIMICRON (CON.) [Concomitant]

REACTIONS (5)
  - MUSCLE SPASMS [None]
  - MUSCULAR WEAKNESS [None]
  - PAIN IN EXTREMITY [None]
  - PSORIATIC ARTHROPATHY [None]
  - SKIN EXFOLIATION [None]
